FAERS Safety Report 15957594 (Version 1)
Quarter: 2019Q1

REPORT INFORMATION
  Report Type: Spontaneous
  Country: US (occurrence: US)
  Receive Date: 20190205
  Receipt Date: 20190205
  Transmission Date: 20190417
  Serious: Yes (Disabling)
  Sender: FDA-Public Use
  Company Number: None

PATIENT
  Age: 27 Year
  Sex: Female
  Weight: 93.6 kg

DRUGS (1)
  1. HCG [Suspect]
     Active Substance: GONADOTROPHIN, CHORIONIC
     Indication: WEIGHT DECREASED
     Route: 058

REACTIONS (6)
  - Hypertension [None]
  - Nausea [None]
  - Cold sweat [None]
  - Night sweats [None]
  - Heart rate increased [None]
  - Hypoaesthesia [None]

NARRATIVE: CASE EVENT DATE: 20180312
